FAERS Safety Report 10566435 (Version 4)
Quarter: 2015Q3

REPORT INFORMATION
  Report Type: Spontaneous
  Country: US (occurrence: US)
  Receive Date: 20141105
  Receipt Date: 20150710
  Transmission Date: 20151125
  Serious: Yes (Hospitalization, Disabling, Other)
  Sender: FDA-Public Use
  Company Number: US-009507513-1109USA03307

PATIENT
  Sex: Female

DRUGS (6)
  1. CYMBALTA [Concomitant]
     Active Substance: DULOXETINE HYDROCHLORIDE
  2. VYTORIN [Suspect]
     Active Substance: EZETIMIBE\SIMVASTATIN
     Dosage: 10-40 MG QD
     Route: 048
     Dates: start: 201004, end: 201310
  3. VALTREX [Suspect]
     Active Substance: VALACYCLOVIR HYDROCHLORIDE
     Indication: HYPERSENSITIVITY
  4. NABUMETONE. [Concomitant]
     Active Substance: NABUMETONE
  5. VALTREX [Suspect]
     Active Substance: VALACYCLOVIR HYDROCHLORIDE
     Indication: ORAL HERPES
  6. VYTORIN [Suspect]
     Active Substance: EZETIMIBE\SIMVASTATIN
     Indication: BLOOD CHOLESTEROL
     Dosage: 10/40 MG QD
     Route: 048
     Dates: start: 200412, end: 20091208

REACTIONS (24)
  - Somatisation disorder [Unknown]
  - Joint instability [Recovering/Resolving]
  - Insomnia [Recovering/Resolving]
  - Hyperlipidaemia [Unknown]
  - Anaemia [Unknown]
  - Diabetic ketoacidosis [Unknown]
  - Depression [Recovering/Resolving]
  - Dysgraphia [Not Recovered/Not Resolved]
  - Anal pruritus [Unknown]
  - Asthenia [Recovering/Resolving]
  - Hypoglycaemia [Unknown]
  - Type 2 diabetes mellitus [Unknown]
  - Asthenia [Recovering/Resolving]
  - Type 1 diabetes mellitus [Unknown]
  - Bedridden [Recovering/Resolving]
  - Hypersensitivity [Unknown]
  - Oral herpes [Unknown]
  - Anxiety [Unknown]
  - Glucose tolerance impaired [Not Recovered/Not Resolved]
  - Altered state of consciousness [Recovering/Resolving]
  - Mental impairment [Recovering/Resolving]
  - Viral upper respiratory tract infection [Unknown]
  - Weight increased [Unknown]
  - Fluid retention [Unknown]

NARRATIVE: CASE EVENT DATE: 2005
